FAERS Safety Report 5031000-9 (Version None)
Quarter: 2006Q2

REPORT INFORMATION
  Report Type: 
  Country: None (occurrence: None)
  Receive Date: 20060621
  Receipt Date: 20060404
  Transmission Date: 20061013
  Serious: No
  Sender: FDA-Public Use
  Company Number: US-GLAXOSMITHKLINE-A0600327A

PATIENT
  Age: 67 Year
  Sex: Female

DRUGS (2)
  1. FLOVENT [Suspect]
     Indication: ASTHMA
     Dosage: 2PUFF TWICE PER DAY
     Route: 055
  2. VENTOLIN [Suspect]
     Indication: ASTHMA
     Dosage: 2PUFF TWICE PER DAY
     Route: 055
     Dates: start: 20050101

REACTIONS (6)
  - BLISTER [None]
  - DRUG INEFFECTIVE [None]
  - DYSPHONIA [None]
  - EAR DISCOMFORT [None]
  - EAR PRURITUS [None]
  - RASH [None]
